FAERS Safety Report 8042124-6 (Version None)
Quarter: 2012Q1

REPORT INFORMATION
  Report Type: 
  Country: None (occurrence: None)
  Receive Date: 20120112
  Receipt Date: 20120104
  Transmission Date: 20120608
  Serious: Yes (Other)
  Sender: FDA-Public Use
  Company Number: CA-JNJFOC-20120103260

PATIENT
  Sex: Female
  Weight: 84 kg

DRUGS (11)
  1. REMICADE [Suspect]
     Route: 042
     Dates: start: 20111101
  2. REMICADE [Suspect]
     Indication: RHEUMATOID ARTHRITIS
     Route: 042
     Dates: start: 20110501
  3. ACETAMINOPHEN [Concomitant]
  4. NAPROXEN (ALEVE) [Concomitant]
  5. NEXIUM [Concomitant]
  6. NASONEX [Concomitant]
  7. NAPROXEN [Concomitant]
  8. ALVESCO [Concomitant]
  9. ELAVIL [Concomitant]
  10. CODEINE CONTIN [Concomitant]
  11. REACTINE [Concomitant]

REACTIONS (1)
  - ALOPECIA [None]
